FAERS Safety Report 8414940-X (Version None)
Quarter: 2012Q2

REPORT INFORMATION
  Report Type: 
  Country: None (occurrence: None)
  Receive Date: 20120601
  Receipt Date: 20120601
  Transmission Date: 20120825
  Serious: Yes (Hospitalization)
  Sender: FDA-Public Use
  Company Number: None

PATIENT
  Age: 34 Year
  Sex: Female
  Weight: 69.8539 kg

DRUGS (1)
  1. COPAXONE [Suspect]
     Indication: MULTIPLE SCLEROSIS
     Dosage: 1ML DAILY SQ
     Route: 058
     Dates: start: 20120507, end: 20120510

REACTIONS (9)
  - DYSPNOEA [None]
  - URTICARIA [None]
  - ANXIETY [None]
  - MUSCLE DISORDER [None]
  - FLUSHING [None]
  - PHARYNGEAL OEDEMA [None]
  - PRURITUS [None]
  - VOMITING [None]
  - PRESYNCOPE [None]
